FAERS Safety Report 12501974 (Version 1)
Quarter: 2016Q2

REPORT INFORMATION
  Report Type: Spontaneous
  Country: US (occurrence: US)
  Receive Date: 20160627
  Receipt Date: 20160627
  Transmission Date: 20160815
  Serious: No
  Sender: FDA-Public Use
  Company Number: US-BRECKENRIDGE PHARMACEUTICAL, INC.-1054352

PATIENT
  Age: 65 Year
  Sex: Female
  Weight: 59.09 kg

DRUGS (2)
  1. LYRICA [Concomitant]
     Active Substance: PREGABALIN
     Route: 048
     Dates: start: 20160303
  2. DULOXETINE HYDROCHLORIDE. [Suspect]
     Active Substance: DULOXETINE HYDROCHLORIDE
     Indication: NEURALGIA
     Route: 048
     Dates: start: 20160328, end: 20160405

REACTIONS (4)
  - Irritability [Recovering/Resolving]
  - Pruritus [Recovering/Resolving]
  - Anxiety [Recovering/Resolving]
  - Central pain syndrome [Recovering/Resolving]
